FAERS Safety Report 6931010-8 (Version None)
Quarter: 2010Q3

REPORT INFORMATION
  Report Type: 
  Country: None (occurrence: None)
  Receive Date: 20100818
  Receipt Date: 20100809
  Transmission Date: 20110219
  Serious: Yes (Other)
  Sender: FDA-Public Use
  Company Number: US-ASTRAZENECA-2010SE32475

PATIENT
  Age: 27294 Day
  Sex: Male

DRUGS (5)
  1. SEROQUEL XR [Suspect]
     Indication: ANTIDEPRESSANT THERAPY
     Route: 048
  2. SEROQUEL XR [Suspect]
     Route: 048
     Dates: start: 20100618, end: 20100625
  3. LEXAPRO [Concomitant]
     Indication: ANXIETY
     Route: 048
     Dates: start: 20100625
  4. TRAZODONE HCL [Concomitant]
     Indication: SLEEP DISORDER
     Route: 048
     Dates: start: 20100625
  5. XANAX [Concomitant]
     Route: 048
     Dates: start: 20100601

REACTIONS (4)
  - AGITATION [None]
  - ANXIETY [None]
  - INSOMNIA [None]
  - PARADOXICAL DRUG REACTION [None]
